FAERS Safety Report 12143212 (Version 1)
Quarter: 2016Q1

REPORT INFORMATION
  Report Type: Spontaneous
  Country: DE (occurrence: DE)
  Receive Date: 20160304
  Receipt Date: 20160304
  Transmission Date: 20160526
  Serious: Yes (Hospitalization, Other)
  Sender: FDA-Public Use
  Company Number: DE-ROCHE-1708204

PATIENT
  Age: 67 Year
  Weight: 64 kg

DRUGS (12)
  1. BENDAMUSTINE [Concomitant]
     Active Substance: BENDAMUSTINE
     Indication: NON-HODGKIN^S LYMPHOMA
     Dosage: 1ST CYCLE
     Route: 065
     Dates: start: 20151026
  2. MABTHERA [Suspect]
     Active Substance: RITUXIMAB
     Dosage: 2ND CYCLE
     Route: 042
     Dates: start: 20151120
  3. BENDAMUSTINE [Concomitant]
     Active Substance: BENDAMUSTINE
     Dosage: 3RD CYCLE
     Route: 065
     Dates: start: 20160104
  4. PEGFILGRASTIM [Concomitant]
     Active Substance: PEGFILGRASTIM
     Route: 058
     Dates: start: 20160107
  5. FENISTIL (GERMANY) [Concomitant]
     Route: 065
     Dates: start: 20160201, end: 20160201
  6. RANITIC [Concomitant]
     Active Substance: RANITIDINE HYDROCHLORIDE
     Route: 065
     Dates: start: 20160201, end: 20160201
  7. MABTHERA [Suspect]
     Active Substance: RITUXIMAB
     Dosage: 3RD CYCLE
     Route: 042
     Dates: start: 20160104
  8. BENDAMUSTINE [Concomitant]
     Active Substance: BENDAMUSTINE
     Dosage: 4TH CYCLE
     Route: 065
     Dates: start: 20160201
  9. MABTHERA [Suspect]
     Active Substance: RITUXIMAB
     Indication: NON-HODGKIN^S LYMPHOMA
     Dosage: 1ST CYCLE
     Route: 042
     Dates: start: 20151026
  10. MABTHERA [Suspect]
     Active Substance: RITUXIMAB
     Dosage: 4TH CYCLE
     Route: 042
     Dates: start: 20160201, end: 20160201
  11. BENDAMUSTINE [Concomitant]
     Active Substance: BENDAMUSTINE
     Dosage: 2ND CYCLE, DOSE REDUCTION TO 70%
     Route: 065
     Dates: start: 20151120
  12. SOLUDACORTIN [Concomitant]
     Route: 065
     Dates: start: 20160201, end: 20160201

REACTIONS (5)
  - Systemic inflammatory response syndrome [Recovered/Resolved]
  - Anaphylactic reaction [Recovered/Resolved]
  - Infusion related reaction [Unknown]
  - Pulmonary embolism [Unknown]
  - Leukopenia [Unknown]

NARRATIVE: CASE EVENT DATE: 20151026
